FAERS Safety Report 18207028 (Version 2)
Quarter: 2020Q3

REPORT INFORMATION
  Report Type: Spontaneous
  Country: JP (occurrence: JP)
  Receive Date: 20200828
  Receipt Date: 20200908
  Transmission Date: 20201103
  Serious: Yes (Hospitalization)
  Sender: FDA-Public Use
  Company Number: JP-JNJFOC-20200834913

PATIENT
  Age: 7 Decade
  Sex: Female

DRUGS (5)
  1. INVEGA [Suspect]
     Active Substance: PALIPERIDONE
     Dosage: PALIPERIDONE:3 MG
     Route: 048
     Dates: start: 20200516, end: 20200627
  2. MELEX [Concomitant]
     Active Substance: MEXAZOLAM
     Route: 048
     Dates: start: 20200601, end: 20200627
  3. AKINETON [Suspect]
     Active Substance: BIPERIDEN HYDROCHLORIDE
     Indication: PRODUCT USED FOR UNKNOWN INDICATION
     Route: 048
     Dates: start: 20200601, end: 20200627
  4. INVEGA [Suspect]
     Active Substance: PALIPERIDONE
     Indication: PRODUCT USED FOR UNKNOWN INDICATION
     Route: 048
     Dates: start: 20200402, end: 2020
  5. MELEX [Concomitant]
     Active Substance: MEXAZOLAM
     Route: 048
     Dates: end: 20200531

REACTIONS (2)
  - Jaundice [Recovered/Resolved]
  - Hepatic function abnormal [Recovered/Resolved]

NARRATIVE: CASE EVENT DATE: 2020
